FAERS Safety Report 8019097-5 (Version None)
Quarter: 2012Q1

REPORT INFORMATION
  Report Type: 
  Country: None (occurrence: None)
  Receive Date: 20120103
  Receipt Date: 20110523
  Transmission Date: 20120608
  Serious: No
  Sender: FDA-Public Use
  Company Number: US-ABBOTT-11P-163-0728104-00

PATIENT
  Sex: Male
  Weight: 56.296 kg

DRUGS (10)
  1. TRICOR [Suspect]
     Indication: BLOOD CHOLESTEROL INCREASED
     Dates: start: 20100401, end: 20110301
  2. NORVASC [Concomitant]
     Indication: HYPERTENSION
  3. PLAVIX [Concomitant]
     Indication: POOR PERIPHERAL CIRCULATION
  4. GALANTAMINE HYDROBROMIDE [Suspect]
     Indication: CONFUSIONAL STATE
     Dates: start: 20100601
  5. ISOSORBIDE DINITRATE [Concomitant]
     Indication: PRODUCT USED FOR UNKNOWN INDICATION
  6. BENAZEPRIL HYDROCHLORIDE [Concomitant]
     Indication: HYPERTENSION
  7. FENOFIBRATE [Suspect]
     Indication: BLOOD CHOLESTEROL INCREASED
     Dosage: GENERIC
     Dates: start: 20110301, end: 20110501
  8. AVODART [Concomitant]
     Indication: PROSTATOMEGALY
  9. WELCHOL [Concomitant]
     Indication: BLOOD CHOLESTEROL INCREASED
  10. METOPROLOL [Concomitant]
     Indication: HEART RATE INCREASED

REACTIONS (1)
  - CONFUSIONAL STATE [None]
